FAERS Safety Report 4771097-4 (Version None)
Quarter: 2005Q3

REPORT INFORMATION
  Report Type: 
  Country: None (occurrence: None)
  Receive Date: 20050914
  Receipt Date: 20050901
  Transmission Date: 20060218
  Serious: Yes (Other)
  Sender: FDA-Public Use
  Company Number: 2005123424

PATIENT
  Age: 66 Year
  Sex: Female
  Weight: 63.9572 kg

DRUGS (5)
  1. BENADRYL [Suspect]
     Indication: HYPERSENSITIVITY
     Dosage: ONE KAPSEAL ONCE, ORAL
     Route: 048
     Dates: start: 20050831, end: 20050831
  2. CALCIUM (CALCIUM) [Concomitant]
  3. LOTREL [Concomitant]
  4. ATORVASTATIN CALCIUM [Concomitant]
  5. CENTRUM SILVER (ASCORBIC ACID, CALCIUM, MINERALS NOS, RETINOL, TOCOPHE [Concomitant]

REACTIONS (1)
  - APHONIA [None]
